FAERS Safety Report 19279509 (Version 4)
Quarter: 2022Q1

REPORT INFORMATION
  Report Type: Spontaneous
  Country: US (occurrence: US)
  Receive Date: 20210520
  Receipt Date: 20220208
  Transmission Date: 20220423
  Serious: Yes (Other)
  Sender: FDA-Public Use
  Company Number: US-ORGANON-O2105USA001528

PATIENT
  Age: 26 Year
  Sex: Female
  Weight: 80.726 kg

DRUGS (1)
  1. NEXPLANON [Suspect]
     Active Substance: ETONOGESTREL
     Indication: Contraception
     Dosage: 1 ROD FOR EVERY 3 YEARS
     Route: 059
     Dates: start: 2019, end: 20210517

REACTIONS (4)
  - Pregnancy with implant contraceptive [Recovered/Resolved]
  - Gestational diabetes [Unknown]
  - Unintended pregnancy [Recovered/Resolved]
  - Anaemia [Unknown]

NARRATIVE: CASE EVENT DATE: 20210402
